FAERS Safety Report 17877517 (Version 1)
Quarter: 2020Q2

REPORT INFORMATION
  Report Type: Report from Study
  Country: FR (occurrence: FR)
  Receive Date: 20200609
  Receipt Date: 20200609
  Transmission Date: 20200714
  Serious: Yes (Hospitalization)
  Sender: FDA-Public Use
  Company Number: PHHO2019FR007264

PATIENT
  Age: 78 Year
  Sex: Male
  Weight: 68 kg

DRUGS (14)
  1. HYDROCHLOROTHIAZIDE. [Concomitant]
     Active Substance: HYDROCHLOROTHIAZIDE
     Indication: HYPERTENSION
     Dosage: UNK
     Route: 065
     Dates: start: 20080101
  2. REPAGLINIDE. [Concomitant]
     Active Substance: REPAGLINIDE
     Indication: TYPE 2 DIABETES MELLITUS
     Dosage: UNK
     Route: 065
     Dates: start: 20000101
  3. ACETILSALICILATO DE LISINA [Concomitant]
     Active Substance: ASPIRIN DL-LYSINE
     Indication: DIABETIC RETINAL OEDEMA
  4. POLYSTYRENE SULFONATE SODIUM [Concomitant]
     Active Substance: SODIUM POLYSTYRENE SULFONATE
     Indication: RENAL FAILURE
     Dosage: UNK
     Route: 065
     Dates: start: 20100101
  5. CALCIDOSE [Concomitant]
     Indication: PROPHYLAXIS
     Dosage: UNK
     Route: 065
     Dates: start: 20181022
  6. URAPIDIL [Concomitant]
     Active Substance: URAPIDIL
     Indication: HYPERTENSION
     Dosage: UNK
     Route: 065
     Dates: start: 20190121
  7. DUOTRAV [Concomitant]
     Active Substance: TIMOLOL MALEATE\TRAVOPROST
     Indication: GLAUCOMA
     Dosage: UNK
     Route: 065
     Dates: start: 20130801
  8. ATORVASTATINE [Concomitant]
     Active Substance: ATORVASTATIN
     Indication: HYPERCHOLESTEROLAEMIA
     Dosage: UNK
     Route: 065
     Dates: start: 20170101
  9. BRINZOLAMIDE [Concomitant]
     Active Substance: BRINZOLAMIDE
     Indication: GLAUCOMA
     Dosage: UNK
     Route: 065
     Dates: start: 20130101
  10. RILMENIDINE [Concomitant]
     Active Substance: RILMENIDINE
     Indication: HYPERTENSION
     Dosage: UNK
     Route: 065
     Dates: start: 20080101
  11. BICARBONATE SODIUM [Concomitant]
     Active Substance: SODIUM BICARBONATE
     Indication: GASTROOESOPHAGEAL REFLUX PROPHYLAXIS
     Dosage: UNK
     Route: 065
     Dates: start: 20181022
  12. EYLEA [Suspect]
     Active Substance: AFLIBERCEPT
     Indication: DIABETIC RETINAL OEDEMA
     Dosage: 2MG/0.05 ML
     Route: 031
     Dates: start: 20181221, end: 20190604
  13. AMLODIPINE [Concomitant]
     Active Substance: AMLODIPINE BESYLATE
     Indication: HYPERTENSION
     Dosage: UNK
     Route: 065
     Dates: start: 20080101
  14. ACETILSALICILATO DE LISINA [Concomitant]
     Active Substance: ASPIRIN DL-LYSINE
     Indication: CARDIOVASCULAR EVENT PROPHYLAXIS
     Dosage: UNK
     Route: 065
     Dates: start: 20130101

REACTIONS (1)
  - Transient ischaemic attack [Recovered/Resolved]

NARRATIVE: CASE EVENT DATE: 20190613
